FAERS Safety Report 6560888-5 (Version None)
Quarter: 2010Q1

REPORT INFORMATION
  Report Type: 
  Country: None (occurrence: None)
  Receive Date: 20100129
  Receipt Date: 20090925
  Transmission Date: 20100710
  Serious: No
  Sender: FDA-Public Use
  Company Number: US-ABBOTT-09P-163-0599449-00

PATIENT
  Sex: Female
  Weight: 43.13 kg

DRUGS (4)
  1. HUMIRA [Suspect]
     Indication: RHEUMATOID ARTHRITIS
     Dates: start: 20080101, end: 20090907
  2. ARTHRITIS MEDICATION [Concomitant]
     Indication: RHEUMATOID ARTHRITIS
  3. PREVACID [Concomitant]
     Indication: ULCER
  4. ASPIRIN [Concomitant]
     Indication: ROUTINE HEALTH MAINTENANCE

REACTIONS (2)
  - DYSGEUSIA [None]
  - PAIN [None]
